FAERS Safety Report 4276033-5 (Version None)
Quarter: 2004Q1

REPORT INFORMATION
  Report Type: 
  Country: None (occurrence: None)
  Receive Date: 20040121
  Receipt Date: 20030702
  Transmission Date: 20041129
  Serious: No
  Sender: FDA-Public Use
  Company Number: US-GLAXOSMITHKLINE-A0415176A

PATIENT
  Age: 60 Year
  Sex: Male

DRUGS (5)
  1. VALTREX [Suspect]
     Route: 048
     Dates: start: 20030601, end: 20030612
  2. ACYCLOVIR [Suspect]
     Route: 048
     Dates: start: 20030612
  3. LIPITOR [Concomitant]
  4. NEXIUM [Concomitant]
  5. ATIVAN [Concomitant]

REACTIONS (2)
  - ASTHENIA [None]
  - TREMOR [None]
